FAERS Safety Report 6820362-5 (Version None)
Quarter: 2010Q3

REPORT INFORMATION
  Report Type: 
  Country: None (occurrence: None)
  Receive Date: 20100707
  Receipt Date: 20100701
  Transmission Date: 20110219
  Serious: Yes (Hospitalization)
  Sender: FDA-Public Use
  Company Number: US-GILEAD-2010-0029791

PATIENT
  Sex: Male

DRUGS (4)
  1. TRUVADA [Suspect]
     Indication: HIV INFECTION
     Route: 048
     Dates: start: 20100427
  2. TRUVADA [Suspect]
     Route: 048
     Dates: start: 20080708
  3. EFAVIRENZ [Suspect]
     Indication: HIV INFECTION
     Route: 048
     Dates: start: 20080708, end: 20100422
  4. PAROXETINE HCL [Concomitant]

REACTIONS (2)
  - PANIC ATTACK [None]
  - SUICIDAL IDEATION [None]
